FAERS Safety Report 25207581 (Version 2)
Quarter: 2025Q2

REPORT INFORMATION
  Report Type: Spontaneous
  Country: BR (occurrence: BR)
  Receive Date: 20250417
  Receipt Date: 20250424
  Transmission Date: 20250716
  Serious: Yes (Hospitalization)
  Sender: MERZ
  Company Number: BR-MERZ THERAPEUTICS GMBH-ACO_177303_2025

PATIENT

DRUGS (1)
  1. DALFAMPRIDINE [Suspect]
     Active Substance: DALFAMPRIDINE
     Indication: Multiple sclerosis
     Dosage: 10 MILLIGRAM (2 PILLS A DAY EVERY 12 HOURS)
     Route: 048
     Dates: start: 20250329, end: 20250402

REACTIONS (5)
  - Pain [Not Recovered/Not Resolved]
  - Somnolence [Unknown]
  - Vomiting [Not Recovered/Not Resolved]
  - Product storage error [Unknown]
  - Product dose omission issue [Unknown]

NARRATIVE: CASE EVENT DATE: 20250329
